FAERS Safety Report 18009660 (Version 1)
Quarter: 2020Q3

REPORT INFORMATION
  Report Type: Spontaneous
  Country: US (occurrence: US)
  Receive Date: 20200710
  Receipt Date: 20200710
  Transmission Date: 20201103
  Serious: Yes (Other)
  Sender: FDA-Public Use
  Company Number: US-PFIZER INC-2020263202

PATIENT
  Age: 79 Year
  Sex: Male

DRUGS (1)
  1. VYNDAQEL [Suspect]
     Active Substance: TAFAMIDIS MEGLUMINE
     Dosage: 80 MG, DAILY (4 CAPSULES BY MOUTH A DAY)
     Route: 048
     Dates: start: 202001

REACTIONS (3)
  - Hernia [Unknown]
  - Back pain [Unknown]
  - Musculoskeletal stiffness [Unknown]
